FAERS Safety Report 11997661 (Version 1)
Quarter: 2016Q1

REPORT INFORMATION
  Report Type: Spontaneous
  Country: US (occurrence: US)
  Receive Date: 20160203
  Receipt Date: 20160203
  Transmission Date: 20160526
  Serious: No
  Sender: FDA-Public Use
  Company Number: US-ANACOR-2015ANA00200

PATIENT
  Sex: Female

DRUGS (8)
  1. VITAMIN D [Concomitant]
     Active Substance: CHOLECALCIFEROL
     Dosage: 400 U, UNK
  2. KERYDIN [Suspect]
     Active Substance: TAVABOROLE
     Indication: ONYCHOMYCOSIS
     Dosage: 1 DOSAGE UNITS TO TOENAILS OF BOTH FEET, 1X/DAY
     Route: 061
     Dates: start: 201508, end: 20151013
  3. ^METANZ^ [Concomitant]
  4. MULTIVITAMIN [Concomitant]
     Active Substance: VITAMINS
  5. LYSINE [Concomitant]
     Active Substance: LYSINE
     Dosage: 500 MG, UNK
  6. SYNTHROID [Concomitant]
     Active Substance: LEVOTHYROXINE SODIUM
     Dosage: 112 ?G, UNK
  7. KERYDIN [Suspect]
     Active Substance: TAVABOROLE
     Dosage: 1 DOSAGE UNITS TO TOENAILS ON RIGHT FOOT, 1X/DAY
     Route: 061
     Dates: start: 20151010
  8. FISH OIL [Concomitant]
     Active Substance: FISH OIL
     Dosage: 1000 MG, UNK

REACTIONS (2)
  - Skin hypertrophy [Recovering/Resolving]
  - Hyperkeratosis [Recovering/Resolving]

NARRATIVE: CASE EVENT DATE: 2015
